FAERS Safety Report 5307707-2 (Version None)
Quarter: 2007Q2

REPORT INFORMATION
  Report Type: 
  Country: None (occurrence: None)
  Receive Date: 20070418
  Receipt Date: 20070406
  Transmission Date: 20071010
  Serious: Yes (Hospitalization, Other)
  Sender: FDA-Public Use
  Company Number: TPA2007A00708

PATIENT
  Age: 85 Year
  Sex: Male
  Weight: 65.7716 kg

DRUGS (6)
  1. ACTOS [Suspect]
     Indication: DIABETES MELLITUS NON-INSULIN-DEPENDENT
     Dosage: SEE IMAGE
     Route: 048
  2. ATENOLOL [Concomitant]
  3. OMEPRAZOLE [Concomitant]
  4. PRAVASTATIN SODIUM [Concomitant]
  5. CARDIA (ALL OTHER THERAPEUTIC PRODUCTS) [Concomitant]
  6. ATACAND [Concomitant]

REACTIONS (2)
  - BLOOD GLUCOSE INCREASED [None]
  - SMALL INTESTINAL OBSTRUCTION [None]
